FAERS Safety Report 23486761 (Version 4)
Quarter: 2024Q4

REPORT INFORMATION
  Report Type: Report from Study
  Country: NL (occurrence: NL)
  Receive Date: 20240206
  Receipt Date: 20241123
  Transmission Date: 20250114
  Serious: Yes (Other)
  Sender: ABBVIE
  Company Number: NL-ABBVIE-5626173

PATIENT
  Sex: Male

DRUGS (9)
  1. CARBIDOPA\LEVODOPA [Suspect]
     Active Substance: CARBIDOPA\LEVODOPA
     Indication: Parkinson^s disease
     Dosage: REMAINS AT 24 HOURS
     Route: 050
     Dates: start: 20140925
  2. CARBIDOPA\LEVODOPA [Suspect]
     Active Substance: CARBIDOPA\LEVODOPA
     Dosage: MD 1.1 ML; CD 2.2 ML/H; ED 0.3 ML; END 0.3 ML; CND 0.6 ML, REMAINS AT 24 HOURS?LAST ADMIN DATE: J...
     Route: 050
     Dates: start: 20240116
  3. CARBIDOPA\LEVODOPA [Suspect]
     Active Substance: CARBIDOPA\LEVODOPA
     Dosage: MD:1.1ML; CD:2.3ML/H; ED:0.30ML; CND:0.6ML/H, REMAINS AT 24 HOURS LAST ADMIN DATE: 2024
     Route: 050
     Dates: start: 20240120
  4. CARBIDOPA\LEVODOPA [Suspect]
     Active Substance: CARBIDOPA\LEVODOPA
     Dosage: MD 1.1 ML; CD 2.3 ML/H; ED 0.6 ML; CND 0.6 ML, REMAINS AT 24 HOURS
     Route: 050
     Dates: start: 20231025, end: 20240116
  5. CARBIDOPA\LEVODOPA [Suspect]
     Active Substance: CARBIDOPA\LEVODOPA
     Dosage: MD:1.1ML; CD:2.3ML/H; ED:0.30ML; CND:0.6ML/H, REMAINS AT 16 HOURS
     Route: 050
     Dates: start: 20240926
  6. CARBIDOPA\LEVODOPA [Suspect]
     Active Substance: CARBIDOPA\LEVODOPA
     Dosage: MD:1.1ML; CD:2.3ML/H; ED:0.30ML, REMAINS AT 24 HOURS
     Route: 050
     Dates: start: 20240911, end: 20240918
  7. CARBIDOPA\LEVODOPA [Suspect]
     Active Substance: CARBIDOPA\LEVODOPA
     Dosage: MD:1.1ML; CD:2.3ML/H; ED:0.30ML, REMAINS AT 24 HOURS
     Route: 050
     Dates: start: 20240918, end: 20240926
  8. CARBIDOPA\LEVODOPA [Suspect]
     Active Substance: CARBIDOPA\LEVODOPA
     Dosage: CND:0.6ML/H; END:1.20ML, REMAINS AT 24 HOURS
     Route: 050
     Dates: start: 20240529, end: 20240911
  9. Microlax [Concomitant]
     Indication: Abnormal faeces
     Dosage: TIME INTERVAL: 0.33333333 WEEKS

REACTIONS (20)
  - Embedded device [Recovered/Resolved]
  - On and off phenomenon [Not Recovered/Not Resolved]
  - Wheelchair user [Not Recovered/Not Resolved]
  - Device issue [Recovered/Resolved]
  - General physical health deterioration [Not Recovered/Not Resolved]
  - Device issue [Not Recovered/Not Resolved]
  - Cystitis noninfective [Unknown]
  - Communication disorder [Not Recovered/Not Resolved]
  - Dementia [Not Recovered/Not Resolved]
  - Enteral nutrition [Not Recovered/Not Resolved]
  - Hypophagia [Not Recovered/Not Resolved]
  - Muscle rigidity [Not Recovered/Not Resolved]
  - Dysstasia [Not Recovered/Not Resolved]
  - Fluid intake reduced [Not Recovered/Not Resolved]
  - Unevaluable event [Unknown]
  - Dystonia [Not Recovered/Not Resolved]
  - Incontinence [Not Recovered/Not Resolved]
  - Productive cough [Not Recovered/Not Resolved]
  - Weight increased [Not Recovered/Not Resolved]
  - Aphasia [Not Recovered/Not Resolved]

NARRATIVE: CASE EVENT DATE: 20241115
